FAERS Safety Report 6057454-7 (Version None)
Quarter: 2009Q1

REPORT INFORMATION
  Report Type: 
  Country: None (occurrence: None)
  Receive Date: 20090129
  Receipt Date: 20090115
  Transmission Date: 20090719
  Serious: Yes (Other)
  Sender: FDA-Public Use
  Company Number: PH-PFIZER INC-2009161454

PATIENT

DRUGS (2)
  1. ALFADIL [Suspect]
     Indication: PROSTATE CANCER
     Dates: start: 20081208
  2. NORVASC [Concomitant]
     Dosage: UNK

REACTIONS (1)
  - PLATELET COUNT DECREASED [None]
